FAERS Safety Report 4850838-1 (Version None)
Quarter: 2005Q4

REPORT INFORMATION
  Report Type: 
  Country: None (occurrence: None)
  Receive Date: 20051208
  Receipt Date: 20051201
  Transmission Date: 20060501
  Serious: Yes (Other)
  Sender: FDA-Public Use
  Company Number: 2005-12-0120

PATIENT
  Age: 43 Year
  Sex: Female

DRUGS (1)
  1. ELOCON [Suspect]
     Indication: LICHEN PLANUS
     Dosage: 0.1% QD TOP-DERM

REACTIONS (2)
  - DETACHMENT OF RETINAL PIGMENT EPITHELIUM [None]
  - RETINOPATHY [None]
